FAERS Safety Report 7812183 (Version 3)
Quarter: 2015Q3

REPORT INFORMATION
  Report Type: Spontaneous
  Country: FR (occurrence: FR)
  Receive Date: 20110215
  Receipt Date: 20150918
  Transmission Date: 20151125
  Serious: Yes (Hospitalization, Other)
  Sender: FDA-Public Use
  Company Number: FR-PFIZER INC-2011027887

PATIENT
  Age: 34 Year
  Sex: Male
  Weight: 62 kg

DRUGS (20)
  1. CYCLOSPORIN A [Interacting]
     Active Substance: CYCLOSPORINE
     Indication: HEART TRANSPLANT
     Dosage: 170 MG, 2X/DAY
  2. COLCHICINE. [Interacting]
     Active Substance: COLCHICINE
     Indication: GOUTY ARTHRITIS
     Dosage: 1 MG, 3X/DAY
     Dates: start: 20091020, end: 20091020
  3. HYDROCORTISONE. [Concomitant]
     Active Substance: HYDROCORTISONE
     Dosage: 20 MG, 1X/DAY
  4. NICORANDIL [Concomitant]
     Active Substance: NICORANDIL
     Dosage: 10 MG, 1X/DAY
  5. COTRIMOXAZOLE [Concomitant]
     Active Substance: SULFAMETHOXAZOLE\TRIMETHOPRIM
  6. ACETYLSALICYLATE LYSINE [Concomitant]
     Active Substance: ASPIRIN DL-LYSINE
     Indication: CORONARY ARTERY DISEASE
     Dosage: 75 MG, 1X/DAY
  7. ESOMEPRAZOLE [Concomitant]
     Active Substance: ESOMEPRAZOLE
     Dosage: 20 MG, UNK
  8. AZITHROMYCIN [Suspect]
     Active Substance: AZITHROMYCIN ANHYDROUS
     Indication: BRONCHIOLITIS
     Dosage: 250 MG, 1X/DAY
  9. COLCHICINE. [Interacting]
     Active Substance: COLCHICINE
     Dosage: 1 MG, 1X/DAY
     Dates: start: 20091023, end: 20091028
  10. IRBESARTAN. [Concomitant]
     Active Substance: IRBESARTAN
     Dosage: 150 MG, 1X/DAY
  11. EVEROLIMUS [Concomitant]
     Active Substance: EVEROLIMUS
     Dosage: 1 MG, 1X/DAY
  12. COLIMYCIN [Concomitant]
  13. CALCIUM [Concomitant]
     Active Substance: CALCIUM
     Dosage: 1 G, 1X/DAY
  14. VITAMIN D [Concomitant]
     Active Substance: CHOLECALCIFEROL
     Dosage: 880 IU, 1X/DAY
  15. PANCREATIN [Concomitant]
     Active Substance: PANCRELIPASE
     Dosage: 250000 IU, 1X/DAY
  16. CYCLOSPORIN A [Interacting]
     Active Substance: CYCLOSPORINE
     Indication: LUNG TRANSPLANT
  17. PRAVASTATIN [Interacting]
     Active Substance: PRAVASTATIN\PRAVASTATIN SODIUM
     Dosage: 20 MG, 1X/DAY
  18. COLCHICINE. [Interacting]
     Active Substance: COLCHICINE
     Dosage: 1 MG, 2X/DAY
     Dates: start: 20091021, end: 20091022
  19. FERROUS ASCORBATE [Concomitant]
     Dosage: 66 MG, 1X/DAY
  20. TOCOPHEROL [Concomitant]
     Active Substance: TOCOPHEROL
     Dosage: 500 MG, 1X/DAY

REACTIONS (3)
  - Potentiating drug interaction [Recovered/Resolved]
  - Toxicity to various agents [Unknown]
  - Rhabdomyolysis [Recovered/Resolved]
